FAERS Safety Report 14678861 (Version 1)
Quarter: 2018Q1

REPORT INFORMATION
  Report Type: Spontaneous
  Country: US (occurrence: US)
  Receive Date: 20180326
  Receipt Date: 20180326
  Transmission Date: 20180509
  Serious: Yes (Hospitalization)
  Sender: FDA-Public Use
  Company Number: US-BAYER-2017-249773

PATIENT
  Age: 68 Year
  Sex: Female

DRUGS (5)
  1. XARELTO [Suspect]
     Active Substance: RIVAROXABAN
     Indication: INTERMITTENT CLAUDICATION
     Dosage: 15 MG, UNK
     Route: 048
     Dates: start: 20141119, end: 20141122
  2. PLAVIX [Suspect]
     Active Substance: CLOPIDOGREL BISULFATE
     Indication: VASCULAR STENT THROMBOSIS
     Dosage: UNK UNK, QD
     Route: 048
     Dates: start: 20141122, end: 20141122
  3. ACETYLSALICYLIC ACID({=100 MG) [Suspect]
     Active Substance: ASPIRIN
     Indication: VASCULAR STENT THROMBOSIS
     Dosage: 81 MG, BID
     Route: 048
     Dates: start: 20141122
  4. XARELTO [Suspect]
     Active Substance: RIVAROXABAN
     Indication: VASCULAR STENT THROMBOSIS
     Dosage: 15 MG, UNK
     Route: 048
     Dates: start: 20141113, end: 20141117
  5. ACETYLSALICYLIC ACID({=100 MG) [Suspect]
     Active Substance: ASPIRIN
     Indication: VASCULAR STENT THROMBOSIS
     Dosage: 81 MG, UNK
     Route: 048
     Dates: start: 20141122

REACTIONS (1)
  - Gastrointestinal haemorrhage [Unknown]

NARRATIVE: CASE EVENT DATE: 20141122
